FAERS Safety Report 8385582-X (Version None)
Quarter: 2012Q2

REPORT INFORMATION
  Report Type: 
  Country: None (occurrence: None)
  Receive Date: 20120525
  Receipt Date: 20120517
  Transmission Date: 20120825
  Serious: Yes (Other)
  Sender: FDA-Public Use
  Company Number: US-RB-040312-12

PATIENT
  Sex: Female

DRUGS (1)
  1. MUCINEX [Suspect]
     Indication: PRODUCT USED FOR UNKNOWN INDICATION
     Dosage: TOOK 3 TO 4 TABLETS OVER THE PAST FEW DAYS
     Route: 048
     Dates: start: 20120501

REACTIONS (7)
  - RASH GENERALISED [None]
  - TONGUE DISORDER [None]
  - SKIN IRRITATION [None]
  - VISUAL IMPAIRMENT [None]
  - EYE SWELLING [None]
  - URTICARIA [None]
  - ERYTHEMA [None]
